FAERS Safety Report 7169548-3 (Version None)
Quarter: 2010Q4

REPORT INFORMATION
  Report Type: 
  Country: None (occurrence: None)
  Receive Date: 20101217
  Receipt Date: 20101210
  Transmission Date: 20110411
  Serious: Yes (Death)
  Sender: FDA-Public Use
  Company Number: US-CELGENEUS-163-21880-10121067

PATIENT
  Sex: Female
  Weight: 46.8 kg

DRUGS (21)
  1. REVLIMID [Suspect]
     Indication: MALIGNANT NEOPLASM OF UTERINE ADNEXA
     Route: 048
     Dates: start: 20100909
  2. REVLIMID [Suspect]
     Indication: OVARIAN CANCER
     Route: 048
     Dates: start: 20100901, end: 20100101
  3. SORAFENIB [Suspect]
     Indication: OVARIAN CANCER
     Route: 048
     Dates: start: 20100909, end: 20100101
  4. ZYRTEC [Concomitant]
     Route: 048
     Dates: end: 20101101
  5. ASPIRIN [Concomitant]
     Indication: PAIN
     Route: 048
     Dates: end: 20100101
  6. BENADRYL [Concomitant]
     Dosage: 1-2 TABLETS, 25MG
     Route: 048
     Dates: end: 20100101
  7. BENADRYL [Concomitant]
     Indication: RASH
  8. COMPAZINE [Concomitant]
     Indication: NAUSEA
     Route: 048
     Dates: end: 20101112
  9. COMPAZINE [Concomitant]
     Indication: VOMITING
  10. EXCEDRIN (MIGRAINE) [Concomitant]
     Indication: HEADACHE
     Dosage: 0.5-1 TABLET
     Route: 048
     Dates: end: 20100101
  11. FENTANYL [Concomitant]
     Indication: PAIN
     Route: 062
     Dates: end: 20101112
  12. SYNTHROID [Concomitant]
     Indication: SUPPLEMENTATION THERAPY
     Route: 048
     Dates: end: 20101112
  13. ATIVAN [Concomitant]
     Indication: INSOMNIA
     Route: 048
     Dates: end: 20101111
  14. ATIVAN [Concomitant]
     Indication: ANXIETY
  15. NEURONTIN [Concomitant]
     Route: 048
     Dates: end: 20100101
  16. OMEPRAZOLE [Concomitant]
     Route: 048
     Dates: end: 20101112
  17. ZOFRAN [Concomitant]
     Indication: NAUSEA
     Route: 048
     Dates: end: 20101111
  18. ZOFRAN [Concomitant]
     Indication: VOMITING
  19. PROZAC [Concomitant]
     Indication: ANXIETY
     Route: 048
     Dates: end: 20101101
  20. PULMICORT [Concomitant]
     Dosage: 2 PUFF
     Route: 055
     Dates: end: 20101104
  21. SENOKOT [Concomitant]
     Route: 048
     Dates: end: 20100101

REACTIONS (1)
  - DEATH [None]
